FAERS Safety Report 18636162 (Version 1)
Quarter: 2020Q4

REPORT INFORMATION
  Report Type: Spontaneous
  Country: JP (occurrence: JP)
  Receive Date: 20201218
  Receipt Date: 20201218
  Transmission Date: 20210114
  Serious: Yes (Hospitalization)
  Sender: FDA-Public Use
  Company Number: JP-FERRINGPH-2020FE08869

PATIENT
  Age: 49 Year
  Sex: Female

DRUGS (10)
  1. THYRADIN S [Concomitant]
     Active Substance: LEVOTHYROXINE SODIUM
     Dosage: 50 MG, 1 TIME DAILY
     Route: 048
  2. MINIRINMELT [Suspect]
     Active Substance: DESMOPRESSIN ACETATE
     Indication: DIABETES INSIPIDUS
     Dosage: 60 UG
     Route: 048
     Dates: start: 20201123
  3. ATORVASTATIN OD [Concomitant]
     Dosage: 10 MG, 1 TIME DAILY
     Route: 048
  4. CORTRIL [Concomitant]
     Active Substance: HYDROCORTISONE
     Dosage: 10 MG, 2 TIMES DAILY
     Route: 048
  5. TRESIBA [Concomitant]
     Active Substance: INSULIN DEGLUDEC
     Route: 058
  6. METGLUCO [Concomitant]
     Active Substance: METFORMIN HYDROCHLORIDE
     Dosage: 750 MG, 2 TIMES DAILY
     Route: 048
  7. DESMOPRESSIN KYOWA [Suspect]
     Active Substance: DESMOPRESSIN
     Indication: DIABETES INSIPIDUS
     Dosage: UNK
     Route: 065
  8. NOVORAPID [Concomitant]
     Active Substance: INSULIN ASPART
     Dosage: 1 DF, 1 TIME DAILY
     Route: 058
  9. TRAZENTA [Concomitant]
     Active Substance: LINAGLIPTIN
     Dosage: 5 MG, 1 TIME DAILY
     Route: 048
  10. THYRADIN S [Concomitant]
     Active Substance: LEVOTHYROXINE SODIUM
     Route: 048

REACTIONS (6)
  - Hyponatraemia [Unknown]
  - Wrong technique in product usage process [Unknown]
  - Recalled product administered [Unknown]
  - Therapeutic response decreased [Unknown]
  - Hospitalisation [Unknown]
  - Out of specification product use [Unknown]

NARRATIVE: CASE EVENT DATE: 2020
